FAERS Safety Report 6030774-8 (Version None)
Quarter: 2009Q1

REPORT INFORMATION
  Report Type: 
  Country: None (occurrence: None)
  Receive Date: 20090107
  Receipt Date: 20090105
  Transmission Date: 20090719
  Serious: Yes (Death, Other)
  Sender: FDA-Public Use
  Company Number: PHHY2009BR00551

PATIENT
  Age: 69 Year
  Sex: Female
  Weight: 55 kg

DRUGS (2)
  1. FORASEQ [Suspect]
     Indication: ASTHMA
  2. FORASEQ [Suspect]
     Indication: DYSPNOEA

REACTIONS (4)
  - ANOREXIA [None]
  - LUNG INFECTION [None]
  - LUNG NEOPLASM MALIGNANT [None]
  - WEIGHT DECREASED [None]
